FAERS Safety Report 5587910-7 (Version None)
Quarter: 2008Q1

REPORT INFORMATION
  Report Type: 
  Country: None (occurrence: None)
  Receive Date: 20080111
  Receipt Date: 20080107
  Transmission Date: 20080703
  Serious: Yes (Life-Threatening)
  Sender: FDA-Public Use
  Company Number: US-BAYER-200810549NA

PATIENT
  Age: 67 Year
  Sex: Female
  Weight: 59 kg

DRUGS (3)
  1. ULTRAVIST (PHARMACY BULK) [Suspect]
     Indication: COMPUTERISED TOMOGRAM
     Dosage: TOTAL DAILY DOSE: 123 ML  UNIT DOSE: 123 ML
     Route: 042
     Dates: start: 20071130, end: 20071130
  2. TOPROL-XL [Concomitant]
     Indication: BLOOD PRESSURE MANAGEMENT
  3. ASPIRIN [Concomitant]

REACTIONS (4)
  - COUGH [None]
  - PALLOR [None]
  - PULMONARY OEDEMA [None]
  - VITAL FUNCTIONS ABNORMAL [None]
